FAERS Safety Report 23133016 (Version 7)
Quarter: 2025Q1

REPORT INFORMATION
  Report Type: Report from Study
  Country: CA (occurrence: CA)
  Receive Date: 20231101
  Receipt Date: 20250109
  Transmission Date: 20250409
  Serious: Yes (Other)
  Sender: TAKEDA
  Company Number: CA-TAKEDA-2022TUS078462

PATIENT
  Age: 43 Year
  Sex: Female

DRUGS (8)
  1. VEDOLIZUMAB [Suspect]
     Active Substance: VEDOLIZUMAB
     Indication: Colitis ulcerative
  2. VEDOLIZUMAB [Suspect]
     Active Substance: VEDOLIZUMAB
  3. VEDOLIZUMAB [Suspect]
     Active Substance: VEDOLIZUMAB
  4. VEDOLIZUMAB [Suspect]
     Active Substance: VEDOLIZUMAB
  5. VEDOLIZUMAB [Suspect]
     Active Substance: VEDOLIZUMAB
  6. VEDOLIZUMAB [Suspect]
     Active Substance: VEDOLIZUMAB
  7. VEDOLIZUMAB [Suspect]
     Active Substance: VEDOLIZUMAB
     Indication: Colitis ulcerative
     Dosage: 108 MILLIGRAM, Q2WEEKS
     Dates: start: 20230905
  8. ENTOCORT [Concomitant]
     Active Substance: BUDESONIDE
     Dosage: 2.3 MILLIGRAM, BID

REACTIONS (12)
  - Colitis ulcerative [Unknown]
  - Rectal haemorrhage [Unknown]
  - Vaginal infection [Unknown]
  - Streptococcal infection [Unknown]
  - Diarrhoea [Unknown]
  - Mucous stools [Unknown]
  - Defaecation urgency [Unknown]
  - Anal incontinence [Unknown]
  - Insomnia [Unknown]
  - Abdominal pain [Unknown]
  - Back pain [Unknown]
  - Sinusitis [Not Recovered/Not Resolved]

NARRATIVE: CASE EVENT DATE: 20240320
